FAERS Safety Report 4951238-6 (Version None)
Quarter: 2006Q1

REPORT INFORMATION
  Report Type: 
  Country: None (occurrence: None)
  Receive Date: 20060317
  Receipt Date: 20060303
  Transmission Date: 20060701
  Serious: Yes (Other)
  Sender: FDA-Public Use
  Company Number: CERZ-11158

PATIENT
  Age: 42 Year
  Sex: Male
  Weight: 41 kg

DRUGS (1)
  1. CEREZYME [Suspect]
     Indication: GAUCHER'S DISEASE
     Dosage: 2600 UNITS Q2WKS IV
     Route: 042
     Dates: start: 19960914

REACTIONS (1)
  - PARKINSON'S DISEASE [None]
